FAERS Safety Report 4505000-9 (Version None)
Quarter: 2004Q4

REPORT INFORMATION
  Report Type: 
  Country: None (occurrence: None)
  Receive Date: 20041015
  Receipt Date: 20031212
  Transmission Date: 20050328
  Serious: Yes (Other)
  Sender: FDA-Public Use
  Company Number: 2003116318

PATIENT
  Age: 26 Year
  Sex: Male
  Weight: 88.905 kg

DRUGS (2)
  1. NEURONTIN [Suspect]
     Indication: NEURITIS
     Dosage: 900 MG TID ORAL
     Route: 048
     Dates: start: 20030401, end: 20030101
  2. CLONAZEPAM [Concomitant]

REACTIONS (12)
  - ABDOMINAL PAIN [None]
  - ABDOMINAL PAIN UPPER [None]
  - ADVERSE DRUG REACTION [None]
  - BLOOD PRESSURE INCREASED [None]
  - FAMILY STRESS [None]
  - FLUID RETENTION [None]
  - HAEMORRHOIDS [None]
  - MOOD SWINGS [None]
  - NIGHT SWEATS [None]
  - PAIN [None]
  - PERSONALITY CHANGE [None]
  - SUICIDAL IDEATION [None]
